FAERS Safety Report 6591186-1 (Version None)
Quarter: 2010Q1

REPORT INFORMATION
  Report Type: 
  Country: None (occurrence: None)
  Receive Date: 20100212
  Receipt Date: 20100127
  Transmission Date: 20100710
  Serious: Yes (Hospitalization)
  Sender: FDA-Public Use
  Company Number: A-US2009-26562

PATIENT
  Age: 84 Year
  Sex: Female

DRUGS (3)
  1. TRACLEER [Suspect]
     Indication: PULMONARY ARTERIAL HYPERTENSION
     Dosage: MG, ORAL; 125 MG, BID, ORAL
     Route: 048
     Dates: start: 20070614, end: 20090701
  2. TRACLEER [Suspect]
     Indication: PULMONARY ARTERIAL HYPERTENSION
     Dosage: MG, ORAL; 125 MG, BID, ORAL
     Route: 048
     Dates: start: 20090701
  3. COUMADIN [Concomitant]

REACTIONS (11)
  - CHOLELITHIASIS [None]
  - COUGH [None]
  - DYSPNOEA [None]
  - GALLBLADDER PAIN [None]
  - INTERNATIONAL NORMALISED RATIO INCREASED [None]
  - NAUSEA [None]
  - PNEUMONIA ASPIRATION [None]
  - PNEUMONITIS [None]
  - PULMONARY ALVEOLAR HAEMORRHAGE [None]
  - PULMONARY ARTERIAL HYPERTENSION [None]
  - VOMITING [None]
